FAERS Safety Report 5314377-6 (Version None)
Quarter: 2007Q2

REPORT INFORMATION
  Report Type: 
  Country: None (occurrence: None)
  Receive Date: 20070502
  Receipt Date: 20070423
  Transmission Date: 20071010
  Serious: Yes (Hospitalization)
  Sender: FDA-Public Use
  Company Number: PHBS2007DE07098

PATIENT
  Age: 44 Year
  Sex: Male

DRUGS (4)
  1. VALSARTAN [Suspect]
     Indication: HYPERTENSION
  2. CARVEDILOL [Suspect]
     Indication: HYPERTENSION
  3. HYDROCHLOROTHIAZIDE [Suspect]
  4. SPIRONOLACTONE [Concomitant]

REACTIONS (5)
  - ADRENAL ADENOMA [None]
  - HYPERALDOSTERONISM [None]
  - HYPERTENSION [None]
  - RETINOPATHY [None]
  - VENTRICULAR HYPERTROPHY [None]
